FAERS Safety Report 8496366-6 (Version None)
Quarter: 2012Q3

REPORT INFORMATION
  Report Type: 
  Country: None (occurrence: None)
  Receive Date: 20120709
  Receipt Date: 20120704
  Transmission Date: 20120928
  Serious: Yes (Death, Other)
  Sender: FDA-Public Use
  Company Number: PE-ABBOTT-12P-127-0914203-00

PATIENT
  Sex: Male

DRUGS (1)
  1. HUMIRA [Suspect]
     Indication: PSORIATIC ARTHROPATHY
     Route: 058
     Dates: start: 20101115, end: 20120228

REACTIONS (5)
  - CRANIOCEREBRAL INJURY [None]
  - PYREXIA [None]
  - HEPATIC CIRRHOSIS [None]
  - URINARY TRACT INFECTION [None]
  - FALL [None]
